FAERS Safety Report 6416664-7 (Version None)
Quarter: 2009Q4

REPORT INFORMATION
  Report Type: 
  Country: None (occurrence: None)
  Receive Date: 20091027
  Receipt Date: 20091020
  Transmission Date: 20100525
  Serious: Yes (Other)
  Sender: FDA-Public Use
  Company Number: GR-PFIZER INC-2009286779

PATIENT

DRUGS (2)
  1. MEDROL [Suspect]
     Dosage: UNK
     Route: 048
     Dates: start: 20091001
  2. DEPAKIN [Concomitant]
     Dosage: UNK
     Dates: start: 20091001

REACTIONS (1)
  - BLOOD GLUCOSE INCREASED [None]
